FAERS Safety Report 4739093-0 (Version None)
Quarter: 2005Q3

REPORT INFORMATION
  Report Type: 
  Country: None (occurrence: None)
  Receive Date: 20050810
  Receipt Date: 20050413
  Transmission Date: 20060218
  Serious: No
  Sender: FDA-Public Use
  Company Number: US-GLAXOSMITHKLINE-A0554016A

PATIENT
  Age: 72 Year
  Sex: Female

DRUGS (4)
  1. PAXIL CR [Suspect]
     Indication: ANXIETY
     Dosage: 25MG AT NIGHT
     Route: 048
     Dates: start: 20030101, end: 20050408
  2. KLONOPIN [Concomitant]
  3. CELEBREX [Concomitant]
  4. DIOVAN [Concomitant]

REACTIONS (4)
  - ABNORMAL DREAMS [None]
  - APATHY [None]
  - LETHARGY [None]
  - TRANSIENT ISCHAEMIC ATTACK [None]
